FAERS Safety Report 7665639-9 (Version None)
Quarter: 2011Q3

REPORT INFORMATION
  Report Type: 
  Country: None (occurrence: None)
  Receive Date: 20110806
  Receipt Date: 20110416
  Transmission Date: 20111222
  Serious: No
  Sender: FDA-Public Use
  Company Number: US-ABBOTT-11P-163-0719355-00

PATIENT
  Sex: Male
  Weight: 106.69 kg

DRUGS (2)
  1. NIASPAN [Suspect]
     Indication: BLOOD CHOLESTEROL INCREASED
     Dosage: 500 MG DAILY AT BEDTIME
     Route: 048
     Dates: start: 20110414
  2. ASPIRIN [Concomitant]
     Indication: PRODUCT USED FOR UNKNOWN INDICATION
     Dosage: 81 MG PRIOR TO DOSE OF NIASPAN
     Route: 048

REACTIONS (1)
  - INITIAL INSOMNIA [None]
